FAERS Safety Report 25411172 (Version 1)
Quarter: 2025Q2

REPORT INFORMATION
  Report Type: Spontaneous
  Country: FR (occurrence: FR)
  Receive Date: 20250609
  Receipt Date: 20250609
  Transmission Date: 20250716
  Serious: Yes (Life-Threatening, Other)
  Sender: HIKMA
  Company Number: FR-MLMSERVICE-20250519-PI512755-00249-1

PATIENT
  Age: 58 Year
  Sex: Female

DRUGS (11)
  1. METHYLPREDNISOLONE [Suspect]
     Active Substance: METHYLPREDNISOLONE
     Indication: Premedication
     Route: 065
     Dates: start: 202311, end: 202312
  2. OXALIPLATIN [Suspect]
     Active Substance: OXALIPLATIN
     Indication: Adenocarcinoma of colon
     Route: 065
     Dates: start: 202311, end: 202312
  3. OXALIPLATIN [Suspect]
     Active Substance: OXALIPLATIN
     Indication: Metastases to liver
  4. OXALIPLATIN [Suspect]
     Active Substance: OXALIPLATIN
     Indication: Metastases to lymph nodes
  5. ERBITUX [Concomitant]
     Active Substance: CETUXIMAB
     Indication: Adenocarcinoma of colon
     Route: 065
     Dates: start: 202311
  6. ERBITUX [Concomitant]
     Active Substance: CETUXIMAB
     Indication: Metastases to liver
  7. ERBITUX [Concomitant]
     Active Substance: CETUXIMAB
     Indication: Metastases to lymph nodes
  8. FLUOROURACIL [Concomitant]
     Active Substance: FLUOROURACIL
     Indication: Adenocarcinoma of colon
     Route: 065
     Dates: start: 202311
  9. FLUOROURACIL [Concomitant]
     Active Substance: FLUOROURACIL
     Indication: Metastases to liver
  10. FLUOROURACIL [Concomitant]
     Active Substance: FLUOROURACIL
     Indication: Metastases to lymph nodes
  11. ONDANSETRON [Concomitant]
     Active Substance: ONDANSETRON
     Indication: Premedication
     Route: 065
     Dates: start: 202311

REACTIONS (1)
  - Immune thrombocytopenia [Recovered/Resolved]

NARRATIVE: CASE EVENT DATE: 20231201
